FAERS Safety Report 19134365 (Version 5)
Quarter: 2021Q2

REPORT INFORMATION
  Report Type: Spontaneous
  Country: US (occurrence: US)
  Receive Date: 20210414
  Receipt Date: 20210617
  Transmission Date: 20210717
  Serious: No
  Sender: FDA-Public Use
  Company Number: US-PHARMING-PHAUS2021000182

PATIENT

DRUGS (1)
  1. RUCONEST [Suspect]
     Active Substance: HUMAN C1-ESTERASE INHIBITOR
     Indication: HEREDITARY ANGIOEDEMA
     Dosage: 4200 IU, AS NEEDED MAX 2/24HRS
     Route: 042
     Dates: start: 20210329

REACTIONS (3)
  - Pyrexia [Unknown]
  - Nasal congestion [Unknown]
  - Spleen disorder [Unknown]

NARRATIVE: CASE EVENT DATE: 20210331
